FAERS Safety Report 21069465 (Version 2)
Quarter: 2024Q3

REPORT INFORMATION
  Report Type: Spontaneous
  Country: US (occurrence: US)
  Receive Date: 20220712
  Receipt Date: 20240722
  Transmission Date: 20241016
  Serious: Yes (Other)
  Sender: ASTELLAS
  Company Number: US-ASTPRD-AER-2022-002806

PATIENT
  Age: 77 Year
  Sex: Male

DRUGS (1)
  1. MYRBETRIQ [Suspect]
     Active Substance: MIRABEGRON
     Indication: Product used for unknown indication
     Dosage: 25 MG ONCE DAILY
     Route: 065

REACTIONS (5)
  - Urinary retention [Unknown]
  - Condition aggravated [Unknown]
  - Urine flow decreased [Unknown]
  - Condition aggravated [Unknown]
  - Fatigue [Unknown]
